FAERS Safety Report 22021265 (Version 1)
Quarter: 2023Q1

REPORT INFORMATION
  Report Type: Spontaneous
  Country: DE (occurrence: DE)
  Receive Date: 20230222
  Receipt Date: 20230222
  Transmission Date: 20230417
  Serious: Yes (Other)
  Sender: FDA-Public Use
  Company Number: None

PATIENT
  Age: 71 Year
  Sex: Female
  Weight: 68 kg

DRUGS (1)
  1. BEZLOTOXUMAB [Suspect]
     Active Substance: BEZLOTOXUMAB
     Dosage: 1 DOSE

REACTIONS (3)
  - Delirium [Recovered/Resolved]
  - Cerebral ischaemia [Recovered/Resolved]
  - Hallucinations, mixed [Recovered/Resolved]

NARRATIVE: CASE EVENT DATE: 20221122
